FAERS Safety Report 12190240 (Version 3)
Quarter: 2017Q2

REPORT INFORMATION
  Report Type: Spontaneous
  Country: DE (occurrence: DE)
  Receive Date: 20160318
  Receipt Date: 20170414
  Transmission Date: 20170830
  Serious: Yes (Other)
  Sender: FDA-Public Use
  Company Number: DE-AUROBINDO-AUR-APL-2016-03537

PATIENT
  Age: 72 Year
  Sex: Male

DRUGS (1)
  1. MONTELUKAST [Suspect]
     Active Substance: MONTELUKAST SODIUM
     Indication: PRODUCT USED FOR UNKNOWN INDICATION
     Dosage: 10 MG, UNK
     Route: 065

REACTIONS (11)
  - Muscle spasms [Unknown]
  - Rash [Unknown]
  - Skin reaction [Unknown]
  - Pain [Unknown]
  - Seizure [Unknown]
  - Somnambulism [Unknown]
  - Arthralgia [Unknown]
  - Pharyngeal oedema [Unknown]
  - Urticaria [Unknown]
  - Insomnia [Unknown]
  - Asthenia [Unknown]
